FAERS Safety Report 7288356-6 (Version None)
Quarter: 2011Q1

REPORT INFORMATION
  Report Type: 
  Country: None (occurrence: None)
  Receive Date: 20110211
  Receipt Date: 20110127
  Transmission Date: 20110831
  Serious: Yes (Other)
  Sender: FDA-Public Use
  Company Number: FR-BAYER-2011-009406

PATIENT
  Sex: Male

DRUGS (2)
  1. NEXAVAR [Suspect]
     Indication: METASTASES TO BONE
  2. NEXAVAR [Suspect]
     Indication: RENAL CANCER
     Dosage: 400 MG, QD

REACTIONS (3)
  - HYPERTENSION [None]
  - CONFUSIONAL STATE [None]
  - ENCEPHALOPATHY [None]
